FAERS Safety Report 6418809-1 (Version None)
Quarter: 2009Q4

REPORT INFORMATION
  Report Type: 
  Country: None (occurrence: None)
  Receive Date: 20091026
  Receipt Date: 20091014
  Transmission Date: 20100525
  Serious: Yes (Other)
  Sender: FDA-Public Use
  Company Number: 430043K09USA

PATIENT
  Sex: Female
  Weight: 50 kg

DRUGS (3)
  1. NOVANTRONE [Suspect]
     Indication: MULTIPLE SCLEROSIS
     Dosage: 12 MG/M2, 1 IN 3 MONTHS, INTRAVENOUS (NOT OTHERWISE SPECIFIED)
     Route: 042
     Dates: start: 20080519
  2. FOSAMAX [Concomitant]
  3. OSCAL (CALCIUM CARBONATE) [Concomitant]

REACTIONS (2)
  - FALL [None]
  - WRIST FRACTURE [None]
